FAERS Safety Report 9601652 (Version 5)
Quarter: 2013Q4

REPORT INFORMATION
  Report Type: Spontaneous
  Country: US (occurrence: US)
  Receive Date: 20131007
  Receipt Date: 20131231
  Transmission Date: 20140711
  Serious: Yes (Other)
  Sender: FDA-Public Use
  Company Number: US-JNJFOC-20131002666

PATIENT
  Sex: Male

DRUGS (1)
  1. REMICADE [Suspect]
     Indication: PSORIATIC ARTHROPATHY
     Dosage: HAD MULTIPLE INFUSIONS FOR YEARS.
     Route: 042
     Dates: start: 2003, end: 201307

REACTIONS (1)
  - Basal cell carcinoma [Not Recovered/Not Resolved]
